FAERS Safety Report 9805848 (Version 1)
Quarter: 2014Q1

REPORT INFORMATION
  Report Type: Spontaneous
  Country: US (occurrence: None)
  Receive Date: 20140107
  Receipt Date: 20140107
  Transmission Date: 20141002
  Serious: Yes (Death)
  Sender: FDA-Public Use
  Company Number: SYM-2013-14484

PATIENT
  Age: 64 Year
  Sex: Female

DRUGS (2)
  1. XENAZINE [Suspect]
     Indication: TARDIVE DYSKINESIA
     Dosage: 12.5 MG 4 IN 1 D ORAL
     Route: 048
     Dates: start: 2011, end: 201311
  2. XENAZINE [Suspect]
     Indication: OFF LABEL USE
     Dosage: 12.5 MG 4 IN 1 D ORAL
     Route: 048
     Dates: start: 2011, end: 201311

REACTIONS (1)
  - Death [None]
